FAERS Safety Report 24687754 (Version 1)
Quarter: 2024Q4

REPORT INFORMATION
  Report Type: Spontaneous
  Country: RS (occurrence: RS)
  Receive Date: 20241202
  Receipt Date: 20241202
  Transmission Date: 20250115
  Serious: Yes (Other)
  Sender: PFIZER
  Company Number: RS-PFIZER INC-202400306132

PATIENT
  Age: 68 Year
  Sex: Male

DRUGS (1)
  1. INLYTA [Suspect]
     Active Substance: AXITINIB
     Dosage: 5 MG, 2X/DAY
     Route: 048
     Dates: start: 202311

REACTIONS (8)
  - Ascites [Unknown]
  - Blood pressure increased [Unknown]
  - Pleural effusion [Unknown]
  - Fatigue [Unknown]
  - Asthenia [Unknown]
  - Flatulence [Unknown]
  - Constipation [Unknown]
  - Urinary incontinence [Unknown]

NARRATIVE: CASE EVENT DATE: 20240301
